FAERS Safety Report 5408922-X (Version None)
Quarter: 2007Q3

REPORT INFORMATION
  Report Type: 
  Country: None (occurrence: None)
  Receive Date: 20070713
  Receipt Date: 20070510
  Transmission Date: 20080115
  Serious: Yes (Hospitalization, Other)
  Sender: FDA-Public Use
  Company Number: US-JNJFOC-20060703305

PATIENT
  Age: 28 Year
  Sex: Female
  Weight: 90.9 kg

DRUGS (3)
  1. ORTHO EVRA [Suspect]
     Indication: DRUG USE FOR UNKNOWN INDICATION
     Dosage: TRANSDERMAL
     Route: 062
     Dates: start: 20040119, end: 20040721
  2. IMITREX [Concomitant]
  3. HYDROCODONE BITARTRATE [Concomitant]

REACTIONS (4)
  - DEEP VEIN THROMBOSIS [None]
  - LUNG INFECTION [None]
  - MENTAL DISORDER [None]
  - PULMONARY EMBOLISM [None]
